FAERS Safety Report 7540052-3 (Version None)
Quarter: 2011Q2

REPORT INFORMATION
  Report Type: 
  Country: None (occurrence: None)
  Receive Date: 20110610
  Receipt Date: 20110609
  Transmission Date: 20111010
  Serious: Yes (Hospitalization, Other)
  Sender: FDA-Public Use
  Company Number: AU-PFIZER INC-2011114511

PATIENT
  Age: 81 Year
  Sex: Female
  Weight: 40.2 kg

DRUGS (8)
  1. VALACICLOVIR [Concomitant]
     Dosage: 1000 MG, 3X/DAY
  2. LYRICA [Suspect]
     Indication: NEURALGIA
     Dosage: 75 MG, 2X/DAY
     Route: 048
     Dates: start: 20110523, end: 20110523
  3. CLONAZEPAM [Concomitant]
     Indication: PARKINSON'S DISEASE
     Dosage: 0.5 MG, AT NIGHT
     Route: 048
     Dates: start: 20101101
  4. LEVOTHYROXINE SODIUM [Concomitant]
     Indication: HYPOTHYROIDISM
     Dosage: 100 UG, UNK
     Route: 048
     Dates: start: 20101001
  5. SEREPAX [Concomitant]
     Indication: INSOMNIA
     Dosage: 30 MG, UNK
     Route: 048
     Dates: start: 20091201
  6. MINITEC [Concomitant]
     Dosage: UNK
  7. PROTHIADEN [Concomitant]
     Dosage: UNK
  8. QUININE [Concomitant]
     Dosage: UNK

REACTIONS (3)
  - CHEST PAIN [None]
  - PARALYSIS [None]
  - SOMNOLENCE [None]
